FAERS Safety Report 21374461 (Version 1)
Quarter: 2022Q3

REPORT INFORMATION
  Report Type: Spontaneous
  Country: OM (occurrence: OM)
  Receive Date: 20220926
  Receipt Date: 20220926
  Transmission Date: 20221026
  Serious: Yes (Hospitalization, Other)
  Sender: FDA-Public Use
  Company Number: OM-NOVARTISPH-NVSC2022OM213421

PATIENT
  Age: 38 Year
  Sex: Female

DRUGS (1)
  1. CARBAMAZEPINE [Suspect]
     Active Substance: CARBAMAZEPINE
     Indication: Arthralgia
     Dosage: UNK
     Route: 065

REACTIONS (2)
  - SJS-TEN overlap [Recovering/Resolving]
  - Product use in unapproved indication [Unknown]
